FAERS Safety Report 15090246 (Version 1)
Quarter: 2018Q2

REPORT INFORMATION
  Report Type: Report from Study
  Country: US (occurrence: US)
  Receive Date: 20180629
  Receipt Date: 20180629
  Transmission Date: 20180711
  Serious: Yes (Other)
  Sender: FDA-Public Use
  Company Number: US-ROCHE-2142447

PATIENT
  Sex: Female

DRUGS (2)
  1. BETADINE [Concomitant]
     Active Substance: POVIDONE-IODINE
  2. LUCENTIS [Suspect]
     Active Substance: RANIBIZUMAB
     Indication: NEOVASCULAR AGE-RELATED MACULAR DEGENERATION
     Route: 050
     Dates: start: 2016

REACTIONS (9)
  - Visual impairment [Unknown]
  - Eye disorder [Unknown]
  - Photosensitivity reaction [Unknown]
  - Contusion [Unknown]
  - Foreign body sensation in eyes [Unknown]
  - Reading disorder [Unknown]
  - Burning sensation [Unknown]
  - Ocular hyperaemia [Unknown]
  - Blindness [Unknown]
